FAERS Safety Report 21204361 (Version 2)
Quarter: 2022Q4

REPORT INFORMATION
  Report Type: Spontaneous
  Country: US (occurrence: US)
  Receive Date: 20220812
  Receipt Date: 20221130
  Transmission Date: 20230112
  Serious: Yes (Other)
  Sender: FDA-Public Use
  Company Number: US-SA-SAC20220810000355

PATIENT
  Age: 56 Year
  Sex: Male

DRUGS (1)
  1. KEVZARA [Suspect]
     Active Substance: SARILUMAB
     Indication: Rheumatoid arthritis
     Dosage: 200 MG, QOW
     Route: 058
     Dates: start: 20220324

REACTIONS (3)
  - Rheumatoid arthritis [Recovered/Resolved]
  - Memory impairment [Unknown]
  - Pain [Recovered/Resolved]

NARRATIVE: CASE EVENT DATE: 20221123
